FAERS Safety Report 7227785-3 (Version None)
Quarter: 2011Q1

REPORT INFORMATION
  Report Type: 
  Country: None (occurrence: None)
  Receive Date: 20110114
  Receipt Date: 20101105
  Transmission Date: 20110831
  Serious: Yes (Hospitalization, Other)
  Sender: FDA-Public Use
  Company Number: US-BAYER-200938991NA

PATIENT
  Sex: Female
  Weight: 84 kg

DRUGS (8)
  1. YASMIN [Suspect]
     Indication: PRODUCT USED FOR UNKNOWN INDICATION
     Route: 048
     Dates: start: 20060101, end: 20060915
  2. IBUPROFEN [Concomitant]
  3. EXCEDRIN (MIGRAINE) [Concomitant]
  4. ZOLOFT [Concomitant]
     Dates: start: 20100101
  5. ASPIRIN [Concomitant]
     Dates: start: 20060101
  6. YAZ [Suspect]
     Indication: PRODUCT USED FOR UNKNOWN INDICATION
     Route: 048
     Dates: start: 20060101, end: 20060915
  7. ALBUTEROL [Concomitant]
  8. TOPROL-XL [Concomitant]
     Dates: start: 20050101, end: 20070615

REACTIONS (2)
  - PULMONARY EMBOLISM [None]
  - THROMBOSIS [None]
